FAERS Safety Report 11583000 (Version 1)
Quarter: 2015Q4

REPORT INFORMATION
  Report Type: Spontaneous
  Country: US (occurrence: US)
  Receive Date: 20151001
  Receipt Date: 20151001
  Transmission Date: 20160304
  Serious: Yes (Other)
  Sender: FDA-Public Use
  Company Number: US-ROCHE-646338

PATIENT
  Age: 52 Year
  Sex: Female
  Weight: 96.2 kg

DRUGS (10)
  1. RIBAVIRIN. [Suspect]
     Active Substance: RIBAVIRIN
     Indication: HEPATITIS C
     Dosage: DIVIDED DOSES
     Route: 048
     Dates: start: 20090724, end: 20091019
  2. GLUCOSAMINE [Concomitant]
     Active Substance: GLUCOSAMINE
     Indication: PROPHYLAXIS
     Dosage: DRUG: GLUCOSAMIN CHONDRITIN
     Route: 048
  3. ROBAXIN [Concomitant]
     Active Substance: METHOCARBAMOL
     Indication: INTERVERTEBRAL DISC PROTRUSION
     Route: 065
  4. ACETAMINOPHEN W CAFFEINE [Concomitant]
     Indication: BACK PAIN
     Dosage: 2 DOSE FORM EVERY SIX HOURS AS NECESSARY
     Route: 065
  5. CIPRO [Concomitant]
     Active Substance: CIPROFLOXACIN HYDROCHLORIDE
     Indication: OROPHARYNGEAL PAIN
     Dosage: ANOTHER INDICATION SINUSITIS
     Route: 048
     Dates: start: 20090822, end: 20090831
  6. TRAMADOL. [Concomitant]
     Active Substance: TRAMADOL
     Indication: BACK PAIN
     Route: 048
  7. TYLENOL [Concomitant]
     Active Substance: ACETAMINOPHEN
     Indication: BACK PAIN
     Dosage: DRUG REPORTED AS TYLENOL ES, 2 TABLETS EVERY SIX HOURS AS NECESSARY
     Route: 048
  8. PEGASYS [Suspect]
     Active Substance: PEGINTERFERON ALFA-2A
     Indication: HEPATITIS C
     Dosage: FORM:PREFILLED SYRINGE
     Route: 058
     Dates: start: 20090724, end: 20091019
  9. SINGULAIR [Concomitant]
     Active Substance: MONTELUKAST SODIUM
     Indication: HYPERSENSITIVITY
     Route: 048
  10. OMEPRAZOLE. [Concomitant]
     Active Substance: OMEPRAZOLE
     Indication: GASTROOESOPHAGEAL REFLUX DISEASE
     Route: 065

REACTIONS (11)
  - Anaemia [Recovered/Resolved]
  - Diarrhoea [Recovered/Resolved]
  - Fatigue [Recovering/Resolving]
  - Eye pain [Recovered/Resolved]
  - Rash pruritic [Recovered/Resolved]
  - Headache [Recovered/Resolved]
  - Pyrexia [Recovered/Resolved]
  - Upper respiratory tract infection [Recovering/Resolving]
  - Sinusitis [Unknown]
  - Abdominal pain [Recovered/Resolved]
  - Arthralgia [Not Recovered/Not Resolved]

NARRATIVE: CASE EVENT DATE: 20090725
